FAERS Safety Report 4918725-8 (Version None)
Quarter: 2006Q1

REPORT INFORMATION
  Report Type: 
  Country: None (occurrence: None)
  Receive Date: 20060216
  Receipt Date: 20060203
  Transmission Date: 20060701
  Serious: Yes (Death, Hospitalization, Other)
  Sender: FDA-Public Use
  Company Number: 2005-02555

PATIENT
  Age: 53 Year
  Sex: Male

DRUGS (11)
  1. VELCADE [Suspect]
     Indication: MULTIPLE MYELOMA
     Dosage: SEE IMAGE
     Route: 040
     Dates: start: 20051107, end: 20051121
  2. VELCADE [Suspect]
     Indication: MULTIPLE MYELOMA
     Dosage: SEE IMAGE
     Route: 040
     Dates: start: 20051205, end: 20051205
  3. MAGNESIUM OXIDE (MAGNESIUM OXIDE) [Concomitant]
  4. CEFTAZIDIME SODIUM [Concomitant]
  5. VALACYCLOVIR HCL [Concomitant]
  6. FERROUS SULFATE TAB [Concomitant]
  7. ERYTHROPOIETIN (ERYTHROPOIETIN) [Concomitant]
  8. FUROSEMIDE [Concomitant]
  9. ALBUTEROL [Concomitant]
  10. CALCIUM (CALCIUM) [Concomitant]
  11. VITAMIN D [Concomitant]

REACTIONS (14)
  - BLOOD VISCOSITY INCREASED [None]
  - CARDIOMEGALY [None]
  - CHEST PAIN [None]
  - DISEASE PROGRESSION [None]
  - DISSEMINATED INTRAVASCULAR COAGULATION [None]
  - DYSPNOEA [None]
  - HYPOXIA [None]
  - LUNG INFILTRATION [None]
  - MULTIPLE MYELOMA [None]
  - PANCYTOPENIA [None]
  - PERICARDIAL EFFUSION [None]
  - PERICARDITIS [None]
  - PLEURAL EFFUSION [None]
  - THROMBOCYTOPENIA [None]
